FAERS Safety Report 9988688 (Version 1)
Quarter: 2014Q1

REPORT INFORMATION
  Report Type: Report from Study
  Country: US (occurrence: US)
  Receive Date: 20140310
  Receipt Date: 20140310
  Transmission Date: 20141002
  Serious: Yes (Other)
  Sender: FDA-Public Use
  Company Number: US-ALEXION-A201305141

PATIENT
  Sex: Female

DRUGS (8)
  1. SOLIRIS [Suspect]
     Indication: PAROXYSMAL NOCTURNAL HAEMOGLOBINURIA
     Dosage: UNK
     Route: 042
  2. MULTIVITAMINS, PLAIN [Concomitant]
  3. GLUCOSAMINE [Concomitant]
  4. SYNTHROID [Concomitant]
  5. PREDNISONE [Concomitant]
  6. ATIVAN [Concomitant]
     Indication: ANXIETY
  7. SEROQUEL [Concomitant]
  8. RISPERDAL CONSTA [Concomitant]
     Dosage: UNKNOWN

REACTIONS (3)
  - Aplastic anaemia [Unknown]
  - Drug hypersensitivity [Unknown]
  - Fatigue [Unknown]
